FAERS Safety Report 5033757-X (Version None)
Quarter: 2006Q2

REPORT INFORMATION
  Report Type: 
  Country: None (occurrence: None)
  Receive Date: 20060620
  Receipt Date: 20060601
  Transmission Date: 20061013
  Serious: Yes (Hospitalization)
  Sender: FDA-Public Use
  Company Number: FR200606000988

PATIENT
  Age: 52 Year
  Sex: Female

DRUGS (20)
  1. FORTEO [Suspect]
     Indication: OSTEOPOROSIS
     Dosage: 20 UG, DAILY (1/D),  SUBCUTANEOUS
     Route: 058
     Dates: start: 20050207, end: 20060301
  2. FORTEO PEN (FORTEO PEN) PEN, DISPOSABLE [Concomitant]
  3. CORTAN [Concomitant]
  4. FORADIL [Concomitant]
  5. BUDESONIDE [Concomitant]
  6. NASONEX (MOMETASONE FUROATE) SUSPENSION [Concomitant]
  7. BRONCHODUAL (FENOTEROL HYDROBROMIDE IPRATROPIUM BROMIDE) [Concomitant]
  8. AMLODIPINE BESYLATE [Concomitant]
  9. DIURETICS [Concomitant]
  10. NATISPRAY (GLYCERYL TRINITRATE) [Concomitant]
  11. PREVISCAN (FLUINDIONE) [Concomitant]
  12. OMEPRAZOLE [Concomitant]
  13. MORPHINE SULFATE [Concomitant]
  14. MORPHINE SULFATE [Concomitant]
  15. DURAGESIC-100 [Concomitant]
  16. ACETAMINOPHEN [Concomitant]
  17. METHOTREXATE [Concomitant]
  18. XANAX [Concomitant]
  19. ATARAX [Concomitant]
  20. ANTIBIOTICS [Concomitant]

REACTIONS (3)
  - PNEUMOCYSTIS JIROVECI PNEUMONIA [None]
  - PULMONARY EMBOLISM [None]
  - ROTATOR CUFF SYNDROME [None]
